FAERS Safety Report 13232855 (Version 1)
Quarter: 2017Q1

REPORT INFORMATION
  Report Type: Spontaneous
  Country: KR (occurrence: KR)
  Receive Date: 20170214
  Receipt Date: 20170214
  Transmission Date: 20170428
  Serious: Yes (Death, Life-Threatening, Hospitalization, Other)
  Sender: FDA-Public Use
  Company Number: KR-BAUSCH-BL-2017-003862

PATIENT
  Age: 5 Year
  Sex: Female

DRUGS (3)
  1. DEXAMETHASONE. [Suspect]
     Active Substance: DEXAMETHASONE
     Indication: ACUTE LYMPHOCYTIC LEUKAEMIA
     Route: 065
  2. L-ASPARAGINASE [Concomitant]
     Active Substance: ASPARAGINASE
     Indication: ACUTE LYMPHOCYTIC LEUKAEMIA
  3. VINCRISTINE [Concomitant]
     Active Substance: VINCRISTINE
     Indication: ACUTE LYMPHOCYTIC LEUKAEMIA

REACTIONS (8)
  - Cytomegalovirus colitis [Unknown]
  - Bacterial sepsis [Unknown]
  - Pneumonia cytomegaloviral [Recovering/Resolving]
  - Respiratory failure [Recovering/Resolving]
  - Megacolon [Unknown]
  - Hypotension [Unknown]
  - Haematochezia [Unknown]
  - Cytomegalovirus infection [Fatal]
